FAERS Safety Report 17587112 (Version 2)
Quarter: 2020Q1

REPORT INFORMATION
  Report Type: Report from Study
  Country: MX (occurrence: MX)
  Receive Date: 20200326
  Receipt Date: 20200328
  Transmission Date: 20200409
  Serious: Yes (Life-Threatening)
  Sender: FDA-Public Use
  Company Number: NVSC2020MX084393

PATIENT
  Age: 73 Year
  Sex: Female
  Weight: 45 kg

DRUGS (1)
  1. STALEVO [Suspect]
     Active Substance: CARBIDOPA\ENTACAPONE\LEVODOPA
     Indication: PARKINSON^S DISEASE
     Dosage: 1 (150/37.5/200 MG) DF, BID (10 OR 12 YEARS)
     Route: 048
     Dates: start: 2010

REACTIONS (8)
  - Depression [Unknown]
  - Dyskinesia [Unknown]
  - General physical health deterioration [Unknown]
  - Speech disorder [Unknown]
  - Drug ineffective [Unknown]
  - Product availability issue [Unknown]
  - Feeling abnormal [Unknown]
  - Decreased appetite [Unknown]

NARRATIVE: CASE EVENT DATE: 201912
